FAERS Safety Report 5490055-8 (Version None)
Quarter: 2007Q4

REPORT INFORMATION
  Report Type: 
  Country: None (occurrence: None)
  Receive Date: 20071018
  Receipt Date: 20071008
  Transmission Date: 20080405
  Serious: Yes (Other)
  Sender: FDA-Public Use
  Company Number: US-ELI_LILLY_AND_COMPANY-US200710001923

PATIENT
  Age: 50 Year
  Sex: Female

DRUGS (5)
  1. CYMBALTA [Suspect]
     Indication: ANXIETY
     Dosage: 60 MG, UNK
     Dates: start: 20050101
  2. ALLEGRA [Concomitant]
     Dosage: 60 MG, 2/D
  3. BENADRYL [Concomitant]
     Indication: SLEEP DISORDER
  4. AMBIEN [Concomitant]
  5. LUPRON [Concomitant]
     Indication: ENDOMETRIOSIS

REACTIONS (11)
  - AGITATION [None]
  - APNOEA [None]
  - CONVULSION [None]
  - DISTURBANCE IN ATTENTION [None]
  - DYSPNOEA [None]
  - FALL [None]
  - HEAD INJURY [None]
  - HEART RATE INCREASED [None]
  - LOSS OF CONSCIOUSNESS [None]
  - ORTHOSTATIC HYPOTENSION [None]
  - TREMOR [None]
